FAERS Safety Report 9801077 (Version 4)
Quarter: 2014Q3

REPORT INFORMATION
  Report Type: Spontaneous
  Country: JP (occurrence: JP)
  Receive Date: 20140107
  Receipt Date: 20140731
  Transmission Date: 20150326
  Serious: Yes (Death, Life-Threatening, Hospitalization)
  Sender: FDA-Public Use
  Company Number: JP-JNJFOC-20140101577

PATIENT
  Age: 59 Year
  Sex: Female
  Weight: 50 kg

DRUGS (7)
  1. NEORAL [Suspect]
     Active Substance: CYCLOSPORINE
     Indication: PSORIASIS
     Route: 048
     Dates: start: 201102, end: 201103
  2. REMICADE [Suspect]
     Active Substance: INFLIXIMAB
     Indication: PSORIASIS
     Route: 042
     Dates: start: 20111018, end: 20111018
  3. REMICADE [Suspect]
     Active Substance: INFLIXIMAB
     Indication: MYCOSIS FUNGOIDES
     Route: 042
     Dates: start: 20111018, end: 20111018
  4. REMICADE [Suspect]
     Active Substance: INFLIXIMAB
     Indication: MYCOSIS FUNGOIDES
     Route: 042
     Dates: start: 20111004, end: 20111004
  5. ETRETINATE [Concomitant]
     Active Substance: ETRETINATE
     Indication: PSORIASIS
     Route: 048
  6. STEROIDS NOS [Concomitant]
     Active Substance: UNSPECIFIED INGREDIENT
     Route: 048
  7. REMICADE [Suspect]
     Active Substance: INFLIXIMAB
     Indication: PSORIASIS
     Route: 042
     Dates: start: 20111004, end: 20111004

REACTIONS (4)
  - Mycosis fungoides [Recovering/Resolving]
  - Bacteraemia [Fatal]
  - Off label use [Unknown]
  - Mycosis fungoides stage II [Not Recovered/Not Resolved]

NARRATIVE: CASE EVENT DATE: 20111004
